FAERS Safety Report 6640247-7 (Version None)
Quarter: 2010Q1

REPORT INFORMATION
  Report Type: 
  Country: None (occurrence: None)
  Receive Date: 20100318
  Receipt Date: 20100312
  Transmission Date: 20100710
  Serious: Yes (Death, Other)
  Sender: FDA-Public Use
  Company Number: ES-CELGENEUS-144-21880-10031672

PATIENT
  Sex: Female

DRUGS (1)
  1. REVLIMID [Suspect]
     Indication: MULTIPLE MYELOMA
     Route: 048
     Dates: start: 20090601

REACTIONS (4)
  - BRONCHOPNEUMONIA [None]
  - CARDIOMEGALY [None]
  - MULTI-ORGAN FAILURE [None]
  - PLEURAL EFFUSION [None]
